FAERS Safety Report 8176297-1 (Version None)
Quarter: 2012Q1

REPORT INFORMATION
  Report Type: 
  Country: None (occurrence: None)
  Receive Date: 20120301
  Receipt Date: 20120222
  Transmission Date: 20120608
  Serious: Yes (Other)
  Sender: FDA-Public Use
  Company Number: US-COVIDIEN/TYCO HEALTHCARE/MALLINCKRODT-T201200715

PATIENT
  Age: 38 Year
  Sex: Female

DRUGS (1)
  1. SODIUM IODIDE I 131 [Suspect]
     Indication: THYROID CANCER
     Dosage: 150 MCI

REACTIONS (1)
  - HYPOCALCAEMIA [None]
